FAERS Safety Report 19714466 (Version 2)
Quarter: 2021Q3

REPORT INFORMATION
  Report Type: Spontaneous
  Country: US (occurrence: US)
  Receive Date: 20210818
  Receipt Date: 20210828
  Transmission Date: 20211014
  Serious: No
  Sender: FDA-Public Use
  Company Number: US-AMGEN-USASP2021126154

PATIENT

DRUGS (1)
  1. CORLANOR [Suspect]
     Active Substance: IVABRADINE HYDROCHLORIDE
     Indication: CARDIAC DISORDER
     Dosage: UNK
     Route: 065

REACTIONS (2)
  - Off label use [Unknown]
  - Drug effective for unapproved indication [Unknown]
